FAERS Safety Report 12763242 (Version 1)
Quarter: 2016Q3

REPORT INFORMATION
  Report Type: Spontaneous
  Country: US (occurrence: US)
  Receive Date: 20160919
  Receipt Date: 20160919
  Transmission Date: 20161109
  Serious: Yes (Other)
  Sender: FDA-Public Use
  Company Number: None

PATIENT
  Age: 74 Year
  Sex: Male
  Weight: 90.72 kg

DRUGS (6)
  1. CIPROFLOXACIN KAISER PERMANENT (MFR:WEST) [Suspect]
     Active Substance: CIPROFLOXACIN
     Indication: URINARY TRACT INFECTION
     Dosage: 6  2 TIMES
     Route: 048
     Dates: start: 20160827, end: 20160828
  2. ACYCLOVIR. [Concomitant]
     Active Substance: ACYCLOVIR
  3. BILBERRY [Concomitant]
     Active Substance: BILBERRY
  4. GRAPE SEED EXTRACT [Concomitant]
     Active Substance: GRAPE SEED EXTRACT
  5. VITAMIN B12 [Concomitant]
     Active Substance: CYANOCOBALAMIN
  6. SHITTERK MUSHROOMS [Concomitant]

REACTIONS (3)
  - Tendon rupture [None]
  - Poor quality sleep [None]
  - Paraesthesia [None]

NARRATIVE: CASE EVENT DATE: 20160829
